FAERS Safety Report 25604686 (Version 3)
Quarter: 2025Q4

REPORT INFORMATION
  Report Type: Spontaneous
  Country: JP (occurrence: JP)
  Receive Date: 20250725
  Receipt Date: 20251226
  Transmission Date: 20260117
  Serious: Yes (Death, Life-Threatening, Hospitalization, Other)
  Sender: BOEHRINGER INGELHEIM
  Company Number: JP-NBI-2025-BI-085148

PATIENT
  Age: 79 Year
  Sex: Male
  Weight: 56.50 kg

DRUGS (7)
  1. DABIGATRAN ETEXILATE MESYLATE [Suspect]
     Active Substance: DABIGATRAN ETEXILATE MESYLATE
     Indication: Atrial fibrillation
     Dates: start: 20131228, end: 20250707
  2. MIRAPEX [Concomitant]
     Active Substance: PRAMIPEXOLE DIHYDROCHLORIDE
  3. CARBIDOPA\LEVODOPA [Concomitant]
     Active Substance: CARBIDOPA\LEVODOPA
  4. TRERIEF OD [Concomitant]
  5. ELOBIXIBAT [Concomitant]
     Active Substance: ELOBIXIBAT
  6. ISTRADEFYLLINE [Concomitant]
     Active Substance: ISTRADEFYLLINE
  7. AZILECT [Concomitant]
     Active Substance: RASAGILINE MESYLATE

REACTIONS (10)
  - Hepatic cancer metastatic [Fatal]
  - Pyrexia [Fatal]
  - Haematochezia [Fatal]
  - Renal impairment [Fatal]
  - Haemorrhagic diathesis [Fatal]
  - Gastrointestinal haemorrhage [Fatal]
  - Shock haemorrhagic [Fatal]
  - Gastric cancer [Fatal]
  - Blood pressure decreased [Unknown]
  - Infection [Unknown]

NARRATIVE: CASE EVENT DATE: 20250706
